FAERS Safety Report 25592752 (Version 1)
Quarter: 2025Q3

REPORT INFORMATION
  Report Type: Spontaneous
  Country: US (occurrence: US)
  Receive Date: 20250722
  Receipt Date: 20250722
  Transmission Date: 20251021
  Serious: No
  Sender: SANOFI AVENTIS
  Company Number: US-SA-2025SA209231

PATIENT
  Sex: Female
  Weight: 80 kg

DRUGS (2)
  1. DUPIXENT [Suspect]
     Active Substance: DUPILUMAB
  2. CIBINQO [Concomitant]
     Active Substance: ABROCITINIB

REACTIONS (1)
  - Oral herpes [Unknown]
